FAERS Safety Report 9213894 (Version 2)
Quarter: 2013Q2

REPORT INFORMATION
  Report Type: Spontaneous
  Country: US (occurrence: US)
  Receive Date: 20130405
  Receipt Date: 20130606
  Transmission Date: 20140414
  Serious: No
  Sender: FDA-Public Use
  Company Number: US-009507513-1304USA002334

PATIENT
  Sex: Female

DRUGS (1)
  1. NUVARING [Suspect]
     Dosage: 3 WEEKS IN, 1 WEEK OUT
     Route: 067
     Dates: start: 201110

REACTIONS (3)
  - Incorrect product storage [Unknown]
  - Poor quality drug administered [Unknown]
  - No adverse event [Unknown]
